FAERS Safety Report 21457398 (Version 2)
Quarter: 2022Q4

REPORT INFORMATION
  Report Type: Spontaneous
  Country: US (occurrence: US)
  Receive Date: 20221014
  Receipt Date: 20221125
  Transmission Date: 20230112
  Serious: No
  Sender: FDA-Public Use
  Company Number: US-SA-SAC20220916000799

PATIENT
  Age: 82 Year
  Sex: Female

DRUGS (3)
  1. DUPIXENT [Suspect]
     Active Substance: DUPILUMAB
     Indication: Dermatitis atopic
     Dosage: 600MG 1X
     Route: 058
     Dates: start: 20220902, end: 20220902
  2. DUPIXENT [Suspect]
     Active Substance: DUPILUMAB
     Indication: Effusion
     Dosage: 300 MG, QOW
     Route: 058
     Dates: start: 202209
  3. DUPIXENT [Suspect]
     Active Substance: DUPILUMAB
     Indication: Arthropathy

REACTIONS (4)
  - Dyspnoea [Unknown]
  - Fall [Unknown]
  - Dermatitis atopic [Unknown]
  - Product use in unapproved indication [Unknown]

NARRATIVE: CASE EVENT DATE: 20220901
